FAERS Safety Report 5052731-0 (Version None)
Quarter: 2006Q3

REPORT INFORMATION
  Report Type: 
  Country: None (occurrence: None)
  Receive Date: 20060717
  Receipt Date: 20041025
  Transmission Date: 20061208
  Serious: Yes (Disabling)
  Sender: FDA-Public Use
  Company Number: US-ROCHE-384417

PATIENT
  Age: 28 Year
  Sex: Male
  Weight: 66.2 kg

DRUGS (2)
  1. ACCUTANE [Suspect]
     Indication: ACNE
     Route: 048
     Dates: start: 19940516, end: 19941213
  2. ACCUTANE [Suspect]
     Route: 048
     Dates: start: 19960708, end: 19960907

REACTIONS (51)
  - ANGINA PECTORIS [None]
  - ANXIETY [None]
  - ARTHRALGIA [None]
  - ASPARTATE AMINOTRANSFERASE INCREASED [None]
  - BACK PAIN [None]
  - BLOOD CHOLESTEROL INCREASED [None]
  - BLOOD TRIGLYCERIDES INCREASED [None]
  - CARDIAC MURMUR [None]
  - CHEST PAIN [None]
  - CLOSTRIDIAL INFECTION [None]
  - COLITIS [None]
  - COLITIS ULCERATIVE [None]
  - DEPRESSION [None]
  - EAR OPERATION [None]
  - FALL [None]
  - FOREIGN BODY IN EYE [None]
  - GASTROINTESTINAL DISORDER [None]
  - GASTROOESOPHAGEAL REFLUX DISEASE [None]
  - HAEMATOCRIT DECREASED [None]
  - HAEMORRHOIDS [None]
  - HEADACHE [None]
  - HYPERTENSION [None]
  - INFLAMMATORY BOWEL DISEASE [None]
  - INGROWING NAIL [None]
  - INTERNAL INJURY [None]
  - INTESTINAL HAEMORRHAGE [None]
  - LIGAMENT RUPTURE [None]
  - LIP DISORDER [None]
  - MELANOCYTIC NAEVUS [None]
  - MUSCULOSKELETAL PAIN [None]
  - MYOFASCITIS [None]
  - NASAL OEDEMA [None]
  - NECK INJURY [None]
  - NECK PAIN [None]
  - PAIN IN EXTREMITY [None]
  - PANIC ATTACK [None]
  - PARAESTHESIA [None]
  - PECTUS EXCAVATUM [None]
  - PLEURISY [None]
  - POLYTRAUMATISM [None]
  - PSEUDOMEMBRANOUS COLITIS [None]
  - RECTAL HAEMORRHAGE [None]
  - REFUSAL OF TREATMENT BY PATIENT [None]
  - ROAD TRAFFIC ACCIDENT [None]
  - ROTATOR CUFF SYNDROME [None]
  - STRESS [None]
  - SUPERFICIAL INJURY OF EYE [None]
  - TENDON INJURY [None]
  - TENDONITIS [None]
  - UMBILICAL HERNIA REPAIR [None]
  - WHITE BLOOD CELL COUNT INCREASED [None]
